FAERS Safety Report 4444888-7 (Version None)
Quarter: 2004Q3

REPORT INFORMATION
  Report Type: 
  Country: None (occurrence: None)
  Receive Date: 20040909
  Receipt Date: 20040702
  Transmission Date: 20050211
  Serious: Yes (Death)
  Sender: FDA-Public Use
  Company Number: JP-GLAXOSMITHKLINE-B0337682A

PATIENT
  Age: 57 Year
  Sex: Male

DRUGS (20)
  1. LAMIVUDINE [Suspect]
     Indication: HEPATIC CIRRHOSIS
     Dosage: 100MG PER DAY
     Route: 048
     Dates: start: 20031111, end: 20031212
  2. FRUSEMIDE [Concomitant]
     Dosage: 40MG PER DAY
     Route: 048
     Dates: end: 20031130
  3. SPIRONOLACTONE [Concomitant]
     Route: 048
     Dates: end: 20031130
  4. REBAMIPIDE [Concomitant]
     Route: 048
     Dates: end: 20031130
  5. RABEPRAZOLE SODIUM [Concomitant]
     Route: 048
     Dates: end: 20031130
  6. MAGNESIUM OXIDE [Concomitant]
     Route: 048
     Dates: end: 20031130
  7. LACTITOL [Concomitant]
     Route: 048
     Dates: end: 20031130
  8. TRIAMTERENE [Concomitant]
     Route: 048
     Dates: end: 20031130
  9. AMMONIUM GLYCYRRHIZATE [Concomitant]
     Dosage: 100ML PER DAY
     Route: 042
     Dates: end: 20031212
  10. ALBUMIN (HUMAN) [Concomitant]
     Dosage: 50ML PER DAY
     Route: 042
     Dates: start: 20031128, end: 20031210
  11. FRUSEMIDE [Concomitant]
     Dosage: 20MG PER DAY
     Route: 042
     Dates: start: 20031201, end: 20031212
  12. DOPAMINE HCL [Concomitant]
     Route: 042
     Dates: start: 20031203, end: 20031212
  13. MEROPENEM [Concomitant]
     Dosage: 1G PER DAY
     Route: 042
     Dates: start: 20031203, end: 20031209
  14. SODIUM BICARBONATE [Concomitant]
     Dosage: 250ML PER DAY
     Route: 042
     Dates: start: 20031204, end: 20031204
  15. CALCIUM GLUCONATE [Concomitant]
     Dosage: 40ML PER DAY
     Route: 042
     Dates: start: 20031206, end: 20031206
  16. METOCLOPRAMIDE HYDROCHLORIDE [Concomitant]
     Dosage: 10MG PER DAY
     Route: 042
     Dates: start: 20031204, end: 20031204
  17. UNSPECIFIED MEDICATION [Concomitant]
     Dosage: 500ML PER DAY
     Route: 042
     Dates: start: 20031203, end: 20031211
  18. FAMOTIDINE [Concomitant]
     Dosage: 20MG PER DAY
     Dates: start: 20031206, end: 20031206
  19. HYDROXYZINE HYDROCHLORIDE [Concomitant]
     Dosage: 25MG PER DAY
     Dates: start: 20031206, end: 20031211
  20. HALOPERIDOL [Concomitant]
     Dosage: 2.5MG PER DAY
     Dates: start: 20031207, end: 20031211

REACTIONS (6)
  - BLOOD PRESSURE DECREASED [None]
  - DEPRESSED LEVEL OF CONSCIOUSNESS [None]
  - INTESTINAL PERFORATION [None]
  - PERITONITIS [None]
  - RENAL FAILURE ACUTE [None]
  - URTICARIA [None]
